FAERS Safety Report 4595155-2 (Version None)
Quarter: 2005Q1

REPORT INFORMATION
  Report Type: 
  Country: None (occurrence: None)
  Receive Date: 20050223
  Receipt Date: 20050212
  Transmission Date: 20050727
  Serious: Yes (Hospitalization, Other)
  Sender: FDA-Public Use
  Company Number: 2004121829

PATIENT
  Age: 55 Year
  Sex: Female

DRUGS (8)
  1. GABAPENTIN [Suspect]
     Indication: BIPOLAR DISORDER
     Dates: start: 20041101, end: 20041201
  2. GABAPENTIN [Suspect]
     Indication: OBSESSIVE-COMPULSIVE DISORDER
     Dates: start: 20041101, end: 20041201
  3. GABAPENTIN [Suspect]
     Indication: POST-TRAUMATIC STRESS DISORDER
     Dates: start: 20041101, end: 20041201
  4. GABAPENTIN [Suspect]
     Indication: SCHIZOAFFECTIVE DISORDER
     Dates: start: 20041101, end: 20041201
  5. VENLAFAXINE HCL [Concomitant]
  6. RISPERDAL [Concomitant]
  7. ZOLPIDEM TARTRATE [Concomitant]
  8. ESCITALOPRAM (ESCITALOPRAM) [Concomitant]

REACTIONS (7)
  - ANXIETY [None]
  - FEAR [None]
  - MENTAL DISORDER [None]
  - NIGHTMARE [None]
  - PANIC REACTION [None]
  - PHARMACEUTICAL PRODUCT COMPLAINT [None]
  - SUICIDAL IDEATION [None]
